FAERS Safety Report 12249655 (Version 1)
Quarter: 2016Q2

REPORT INFORMATION
  Report Type: Spontaneous
  Country: US (occurrence: US)
  Receive Date: 20160408
  Receipt Date: 20160408
  Transmission Date: 20160815
  Serious: No
  Sender: FDA-Public Use
  Company Number: US-PFIZER INC-2016157877

PATIENT
  Age: 36 Year
  Sex: Female
  Weight: 70.76 kg

DRUGS (2)
  1. LYRICA [Suspect]
     Active Substance: PREGABALIN
     Indication: FIBROMYALGIA
     Dosage: 150 MG, 3X/DAY
     Route: 048
     Dates: start: 2009, end: 201602
  2. PROZAC [Concomitant]
     Active Substance: FLUOXETINE HYDROCHLORIDE
     Indication: DEPRESSION
     Dosage: 40 MG, 1X/DAY
     Route: 048

REACTIONS (6)
  - Fatigue [Recovering/Resolving]
  - Expired product administered [Unknown]
  - Movement disorder [Recovering/Resolving]
  - Product use issue [Unknown]
  - Pain [Recovering/Resolving]
  - Impaired work ability [Recovering/Resolving]

NARRATIVE: CASE EVENT DATE: 2009
